FAERS Safety Report 12893146 (Version 1)
Quarter: 2016Q4

REPORT INFORMATION
  Report Type: Report from Study
  Country: TW (occurrence: TW)
  Receive Date: 20161028
  Receipt Date: 20161028
  Transmission Date: 20170207
  Serious: Yes (Hospitalization, Other)
  Sender: FDA-Public Use
  Company Number: TW-ACTELION-A-US2016-144509

PATIENT
  Age: 40 Year
  Sex: Male

DRUGS (8)
  1. ADEMPAS [Concomitant]
     Active Substance: RIOCIGUAT
  2. AMINOPHYLLINE. [Concomitant]
     Active Substance: AMINOPHYLLINE
  3. EXFORGE [Concomitant]
     Active Substance: AMLODIPINE BESYLATE\VALSARTAN
  4. WARFARIN [Concomitant]
     Active Substance: WARFARIN
  5. VENTAVIS [Suspect]
     Active Substance: ILOPROST
     Indication: PULMONARY ARTERIAL HYPERTENSION
     Dosage: 6 AMPULE/DAY
     Route: 055
     Dates: start: 20150209
  6. AMBROXOL [Concomitant]
     Active Substance: AMBROXOL
  7. FUROSEMIDE. [Concomitant]
     Active Substance: FUROSEMIDE
  8. MEPTIN [Concomitant]
     Active Substance: PROCATEROL HYDROCHLORIDE

REACTIONS (3)
  - Dyspnoea [Recovered/Resolved]
  - Arrhythmia [Unknown]
  - Pleural effusion [Unknown]

NARRATIVE: CASE EVENT DATE: 20161022
